FAERS Safety Report 8059238-7 (Version None)
Quarter: 2012Q1

REPORT INFORMATION
  Report Type: 
  Country: None (occurrence: None)
  Receive Date: 20120120
  Receipt Date: 20120113
  Transmission Date: 20120608
  Serious: Yes (Other)
  Sender: FDA-Public Use
  Company Number: FR-AMGEN-FRASP2011056871

PATIENT
  Age: 81 Year
  Sex: Female
  Weight: 48 kg

DRUGS (6)
  1. ARANESP [Suspect]
     Dosage: 20 MUG, Q2WK
  2. ARANESP [Suspect]
     Indication: ANAEMIA
     Dosage: 20 MUG, Q2WK
     Dates: start: 20110902
  3. NEXIUM [Concomitant]
     Indication: REFLUX GASTRITIS
     Dosage: UNK UNK, QD
  4. ACTONEL [Concomitant]
     Indication: OSTEOPOROSIS
     Dosage: UNK UNK, QWK
     Route: 048
     Dates: start: 20100526
  5. PLAVIX [Concomitant]
     Indication: ARTERIAL THROMBOSIS
     Dosage: UNK UNK, QD
     Route: 048
  6. CALCIUM CARBONATE [Concomitant]
     Indication: CALCIUM DEFICIENCY
     Dosage: UNK UNK, QD
     Route: 048

REACTIONS (3)
  - BLOOD POTASSIUM INCREASED [None]
  - MONOPLEGIA [None]
  - ABASIA [None]
